FAERS Safety Report 8513027-5 (Version None)
Quarter: 2012Q3

REPORT INFORMATION
  Report Type: 
  Country: None (occurrence: None)
  Receive Date: 20120716
  Receipt Date: 20120711
  Transmission Date: 20120928
  Serious: No
  Sender: FDA-Public Use
  Company Number: US-TEVA-348059USA

PATIENT
  Sex: Male
  Weight: 71.732 kg

DRUGS (10)
  1. PREDNISONE [Concomitant]
  2. METHOTREXATE [Concomitant]
  3. AZMACORT [Concomitant]
  4. SANCTURA [Concomitant]
  5. NUVIGIL [Suspect]
     Indication: SLEEP APNOEA SYNDROME
     Route: 048
     Dates: start: 20120701
  6. ASPIRIN [Concomitant]
  7. PEPCID [Concomitant]
  8. PROVENTIL [Concomitant]
  9. FLOMAX [Concomitant]
  10. LIPITOR [Concomitant]

REACTIONS (4)
  - ANXIETY [None]
  - FEELING ABNORMAL [None]
  - HALLUCINATION, VISUAL [None]
  - DEPRESSION [None]
